FAERS Safety Report 22330830 (Version 1)
Quarter: 2023Q2

REPORT INFORMATION
  Report Type: Spontaneous
  Country: US (occurrence: US)
  Receive Date: 20230517
  Receipt Date: 20230517
  Transmission Date: 20230722
  Serious: Yes (Other)
  Sender: FDA-Public Use
  Company Number: US-SUN PHARMACEUTICAL INDUSTRIES LTD-2023R1-381061

PATIENT
  Age: 8 Week
  Sex: Male
  Weight: 5.6 kg

DRUGS (2)
  1. DEXMEDETOMIDINE [Suspect]
     Active Substance: DEXMEDETOMIDINE
     Indication: Sedation
     Dosage: 0.2 MICROGRAM/KILOGRAM/HOUR
     Route: 065
  2. DEXMEDETOMIDINE [Suspect]
     Active Substance: DEXMEDETOMIDINE
     Dosage: 0.7 MICROGRAM/KILOGRAM/HOUR
     Route: 065

REACTIONS (3)
  - Cardiac arrest [Recovered/Resolved]
  - Sinus arrest [Recovered/Resolved]
  - Bradycardia [Recovered/Resolved]
